FAERS Safety Report 5940671-1 (Version None)
Quarter: 2008Q4

REPORT INFORMATION
  Report Type: 
  Country: None (occurrence: None)
  Receive Date: 20081103
  Receipt Date: 20081103
  Transmission Date: 20090506
  Serious: Yes (Life-Threatening, Hospitalization)
  Sender: FDA-Public Use
  Company Number: None

PATIENT
  Age: 64 Year
  Sex: Male
  Weight: 114.3 kg

DRUGS (2)
  1. DEXTROSE/HEPARIN [Suspect]
     Indication: ATRIAL FIBRILLATION
     Dosage: 21.2 ML PER HOUR IV
     Route: 042
     Dates: start: 20080924, end: 20080925
  2. ENOXAPARIN SODIUM [Suspect]
     Indication: ATRIAL FIBRILLATION
     Dosage: 150 MG BID SQ
     Route: 058
     Dates: start: 20080925, end: 20080929

REACTIONS (9)
  - ACTIVATED PARTIAL THROMBOPLASTIN TIME PROLONGED [None]
  - BLOOD PRESSURE DECREASED [None]
  - CARDIO-RESPIRATORY ARREST [None]
  - DIZZINESS [None]
  - GASTRIC HAEMORRHAGE [None]
  - HAEMOGLOBIN DECREASED [None]
  - LOSS OF CONSCIOUSNESS [None]
  - MENTAL IMPAIRMENT [None]
  - RETROPERITONEAL HAEMORRHAGE [None]
